FAERS Safety Report 20145515 (Version 1)
Quarter: 2021Q4

REPORT INFORMATION
  Report Type: Spontaneous
  Country: US (occurrence: US)
  Receive Date: 20211203
  Receipt Date: 20211203
  Transmission Date: 20220303
  Serious: Yes (Other)
  Sender: FDA-Public Use
  Company Number: US-PFIZER INC-202101654888

PATIENT
  Age: 82 Year
  Sex: Male

DRUGS (3)
  1. PREGABALIN [Suspect]
     Active Substance: PREGABALIN
     Dosage: 25 MG, 1X/DAY (25 MG 1 PILL A DAY THEN MOVED TO 2 PILLS A DAY AND THEN 3 PILLS)
  2. PREGABALIN [Suspect]
     Active Substance: PREGABALIN
     Dosage: 25 MG, 2X/DAY (25 MG 1 PILL A DAY THEN MOVED TO 2 PILLS A DAY AND THEN 3 PILLS)
  3. PREGABALIN [Suspect]
     Active Substance: PREGABALIN
     Dosage: 25 MG, 3X/DAY (25 MG 1 PILL A DAY THEN MOVED TO 2 PILLS A DAY AND THEN 3 PILLS)

REACTIONS (8)
  - Atrial fibrillation [Unknown]
  - Diabetes mellitus [Unknown]
  - Balance disorder [Unknown]
  - Feeling abnormal [Unknown]
  - Speech disorder [Unknown]
  - Dizziness [Unknown]
  - Impaired driving ability [Unknown]
  - Dry mouth [Unknown]
